FAERS Safety Report 9663037 (Version 2)
Quarter: 2019Q2

REPORT INFORMATION
  Report Type: Spontaneous
  Country: US (occurrence: US)
  Receive Date: 20131031
  Receipt Date: 20190417
  Transmission Date: 20190711
  Serious: Yes (Other)
  Sender: FDA-Public Use
  Company Number: US-SA-2013SA111218

PATIENT
  Age: 64 Year
  Sex: Female

DRUGS (5)
  1. LANTUS [Suspect]
     Active Substance: INSULIN GLARGINE
     Dosage: UNK UNK,UNK
     Route: 051
  2. NOVOLIN [Suspect]
     Active Substance: INSULIN HUMAN
     Dosage: UNK UNK,UNK
     Route: 065
  3. LEVEMIR [Suspect]
     Active Substance: INSULIN DETEMIR
     Dosage: UNK UNK,UNK
     Route: 065
  4. APIDRA [Suspect]
     Active Substance: INSULIN GLULISINE
     Dosage: UNK UNK,UNK WITH MEALS
     Route: 058
  5. NOVOLOG [Suspect]
     Active Substance: INSULIN ASPART
     Dosage: UNK UNK,UNK
     Route: 065

REACTIONS (8)
  - Retinopathy [Unknown]
  - Diabetic retinopathy [Unknown]
  - Blood glucose abnormal [Unknown]
  - Product quality issue [Unknown]
  - Drug ineffective [Unknown]
  - Macular oedema [Unknown]
  - Injection site pain [Unknown]
  - Weight increased [Unknown]
